FAERS Safety Report 7407127-0 (Version None)
Quarter: 2011Q2

REPORT INFORMATION
  Report Type: 
  Country: None (occurrence: None)
  Receive Date: 20110411
  Receipt Date: 20110408
  Transmission Date: 20111010
  Serious: No
  Sender: FDA-Public Use
  Company Number: US-B.I. PHARMACEUTICALS,INC./RIDGEFIELD-2011-BP-07014BP

PATIENT
  Age: 75 Year
  Sex: Female

DRUGS (5)
  1. PRAVASTATIN [Concomitant]
     Indication: BLOOD CHOLESTEROL INCREASED
     Dosage: 20 MG
     Route: 048
     Dates: start: 20000101
  2. PRADAXA [Suspect]
     Indication: ATRIAL FIBRILLATION
     Dosage: 300 MG
     Route: 048
     Dates: start: 20110217
  3. ATIVAN [Concomitant]
     Indication: ANXIETY
     Dosage: 0.5 MG
     Route: 048
     Dates: start: 20000101
  4. VERAPAMIL [Concomitant]
     Indication: ATRIAL FLUTTER
     Dosage: 240 MG
     Route: 048
     Dates: start: 20070101
  5. VERAPAMIL [Concomitant]
     Indication: HYPERTENSION

REACTIONS (1)
  - WOUND INFECTION [None]
